FAERS Safety Report 14325138 (Version 3)
Quarter: 2018Q2

REPORT INFORMATION
  Report Type: Spontaneous
  Country: US (occurrence: US)
  Receive Date: 20171226
  Receipt Date: 20180628
  Transmission Date: 20180711
  Serious: No
  Sender: FDA-Public Use
  Company Number: US-CLOVIS ONCOLOGY-CLO-2017-001455

PATIENT
  Age: 53 Year
  Sex: Female

DRUGS (2)
  1. RUBRACA [Suspect]
     Active Substance: RUCAPARIB CAMSYLATE
     Indication: CARBOHYDRATE ANTIGEN 125 INCREASED
  2. RUBRACA [Suspect]
     Active Substance: RUCAPARIB CAMSYLATE
     Indication: MALIGNANT NEOPLASM OF UTERINE ADNEXA
     Dosage: 600 MG, BID
     Route: 048
     Dates: start: 20171214

REACTIONS (24)
  - Cold sweat [Not Recovered/Not Resolved]
  - Gastrointestinal hypomotility [Unknown]
  - Skin atrophy [Unknown]
  - Malaise [Unknown]
  - Nausea [Unknown]
  - Asthenia [Unknown]
  - Impaired gastric emptying [Unknown]
  - Blood urea increased [Unknown]
  - Blood pressure increased [Unknown]
  - Dry skin [Unknown]
  - Constipation [Unknown]
  - Dyspnoea [Not Recovered/Not Resolved]
  - Abdominal distension [Unknown]
  - Dry mouth [Unknown]
  - Off label use [Unknown]
  - Poor quality sleep [Unknown]
  - Drug dose omission [Unknown]
  - Nightmare [Not Recovered/Not Resolved]
  - Presyncope [Unknown]
  - Fatigue [Unknown]
  - Insomnia [Unknown]
  - Depression [Unknown]
  - Dry eye [Unknown]
  - Vision blurred [Unknown]

NARRATIVE: CASE EVENT DATE: 20180618
